FAERS Safety Report 13020193 (Version 1)
Quarter: 2016Q4

REPORT INFORMATION
  Report Type: Spontaneous
  Country: FR (occurrence: FR)
  Receive Date: 20161212
  Receipt Date: 20161212
  Transmission Date: 20170207
  Serious: Yes (Hospitalization)
  Sender: FDA-Public Use
  Company Number: FR-ELI_LILLY_AND_COMPANY-FR201611011123

PATIENT
  Age: 65 Year
  Sex: Male

DRUGS (5)
  1. ALIMTA [Suspect]
     Active Substance: PEMETREXED DISODIUM
     Indication: LUNG ADENOCARCINOMA
     Dosage: 900 MG, CYCLICAL
     Route: 042
     Dates: start: 201605
  2. ALIMTA [Suspect]
     Active Substance: PEMETREXED DISODIUM
     Dosage: 875 MG, CYCLICAL
     Route: 042
     Dates: end: 20160823
  3. CARBOPLATINE [Suspect]
     Active Substance: CARBOPLATIN
     Dosage: 520 MG, CYCLICAL
     Route: 042
     Dates: end: 20160823
  4. AVASTIN [Suspect]
     Active Substance: BEVACIZUMAB
     Indication: LUNG ADENOCARCINOMA
     Dosage: 800 MG, CYCLICAL
     Route: 042
     Dates: start: 20160823, end: 20160823
  5. CARBOPLATINE [Suspect]
     Active Substance: CARBOPLATIN
     Indication: LUNG ADENOCARCINOMA
     Dosage: 740 MG, CYCLICAL
     Route: 042
     Dates: start: 201605

REACTIONS (4)
  - Proteinuria [Unknown]
  - Pneumoperitoneum [Recovering/Resolving]
  - Pneumomediastinum [Recovering/Resolving]
  - Off label use [Unknown]

NARRATIVE: CASE EVENT DATE: 20160908
